FAERS Safety Report 7808168-1 (Version None)
Quarter: 2011Q4

REPORT INFORMATION
  Report Type: 
  Country: None (occurrence: None)
  Receive Date: 20111011
  Receipt Date: 20110927
  Transmission Date: 20120403
  Serious: Yes (Other)
  Sender: FDA-Public Use
  Company Number: BR-MERCK-1106BRA00035

PATIENT
  Age: 63 Year
  Sex: Female

DRUGS (5)
  1. STRONTIUM RANELATE [Concomitant]
     Route: 065
  2. ZOLEDRONIC ACID [Concomitant]
     Route: 065
  3. CHOLECALCIFEROL [Concomitant]
     Route: 065
  4. FOSAMAX [Suspect]
     Route: 065
     Dates: start: 20060101
  5. RISEDRONATE SODIUM [Suspect]
     Route: 065
     Dates: start: 20100101

REACTIONS (1)
  - FEMUR FRACTURE [None]
